FAERS Safety Report 9661480 (Version 2)
Quarter: 2013Q4

REPORT INFORMATION
  Report Type: Spontaneous
  Country: US (occurrence: US)
  Receive Date: 20131031
  Receipt Date: 20131031
  Transmission Date: 20140711
  Serious: No
  Sender: FDA-Public Use
  Company Number: US-PURDUE-USA-2010-0055351

PATIENT
  Age: 55 Year
  Sex: Female

DRUGS (3)
  1. OXYCONTIN (NDA 22-272) [Suspect]
     Indication: PAIN
     Dosage: 40 MG, TID
     Route: 048
     Dates: start: 20100927
  2. OXYCONTIN (NDA 22-272) [Suspect]
     Dosage: 20 MG, TID
     Dates: start: 20100927
  3. OXYCONTIN (NDA 22-272) [Suspect]
     Dosage: 60 MG, TID

REACTIONS (5)
  - Foreign body [Unknown]
  - Nausea [Unknown]
  - Somnolence [Unknown]
  - Drug effect decreased [Unknown]
  - Drug effect delayed [Unknown]
